FAERS Safety Report 4431026-X (Version None)
Quarter: 2004Q3

REPORT INFORMATION
  Report Type: 
  Country: None (occurrence: None)
  Receive Date: 20040824
  Receipt Date: 20031208
  Transmission Date: 20050211
  Serious: No
  Sender: FDA-Public Use
  Company Number: US-BRISTOL-MYERS SQUIBB COMPANY-12452686

PATIENT
  Age: 80 Year
  Sex: Female
  Weight: 41 kg

DRUGS (4)
  1. MEGACE [Suspect]
     Indication: WEIGHT DECREASED
     Dosage: 2 TEASPOONFULS DAILY FOR WEIGHT MANAGEMENT
     Route: 048
  2. OXYCONTIN [Concomitant]
  3. PERCOCET [Concomitant]
  4. FEMARA [Concomitant]

REACTIONS (2)
  - INSOMNIA [None]
  - PALPITATIONS [None]
